FAERS Safety Report 18362045 (Version 4)
Quarter: 2023Q1

REPORT INFORMATION
  Report Type: Other
  Country: US (occurrence: None)
  Receive Date: 20201008
  Receipt Date: 20230327
  Transmission Date: 20230417
  Serious: Yes (Other)
  Sender: FDA-Public Use
  Company Number: US-ROCHE-2152306

PATIENT
  Age: 71 Year
  Sex: Female

DRUGS (6)
  1. ZELBORAF [Suspect]
     Active Substance: VEMURAFENIB
     Indication: Histiocytosis
     Route: 048
     Dates: start: 20170718
  2. ZELBORAF [Suspect]
     Active Substance: VEMURAFENIB
     Indication: Hyperlipidaemia
     Dosage: TAKE 2 TABLETS BY MOUTH TWICE A DAY
     Route: 048
  3. ZELBORAF [Suspect]
     Active Substance: VEMURAFENIB
     Indication: Thyroid function test abnormal
     Dosage: TAKE 2 TABLETS BY MOUTH TWICE A DAY
     Route: 048
  4. ZELBORAF [Suspect]
     Active Substance: VEMURAFENIB
     Indication: Essential hypertension
     Dosage: TAKE 2 TABLETS BY MOUTH TWICE A DAY
     Route: 048
  5. ZELBORAF [Suspect]
     Active Substance: VEMURAFENIB
     Indication: Diabetes mellitus
  6. ZELBORAF [Suspect]
     Active Substance: VEMURAFENIB
     Indication: Type 2 diabetes mellitus

REACTIONS (3)
  - Deafness [Unknown]
  - Visual impairment [Unknown]
  - Off label use [Unknown]
